FAERS Safety Report 5334207-6 (Version None)
Quarter: 2007Q2

REPORT INFORMATION
  Report Type: 
  Country: None (occurrence: None)
  Receive Date: 20070517
  Receipt Date: 20070504
  Transmission Date: 20071010
  Serious: Yes (Other)
  Sender: FDA-Public Use
  Company Number: WSDF_00618

PATIENT
  Age: 46 Year
  Sex: Male
  Weight: 134 kg

DRUGS (7)
  1. WINRHO SDF [Suspect]
     Indication: IDIOPATHIC THROMBOCYTOPENIC PURPURA
     Dosage: 50 ?G/KG ONCE IV
     Route: 042
     Dates: start: 20070208, end: 20070208
  2. WINRHO SDF [Suspect]
     Indication: IDIOPATHIC THROMBOCYTOPENIC PURPURA
     Dates: start: 20070208, end: 20070208
  3. ATORVASTATIN [Concomitant]
  4. CANDESARTAN [Concomitant]
  5. HYDROCHLOROTHIAZIDE [Concomitant]
  6. METFORMIN HCL [Concomitant]
  7. DEXASON [Concomitant]

REACTIONS (7)
  - CHILLS [None]
  - HYPERSENSITIVITY [None]
  - HYPOXIA [None]
  - MALAISE [None]
  - NAUSEA [None]
  - OXYGEN SATURATION DECREASED [None]
  - PLATELET COUNT ABNORMAL [None]
